FAERS Safety Report 7639113-X (Version None)
Quarter: 2011Q3

REPORT INFORMATION
  Report Type: 
  Country: None (occurrence: None)
  Receive Date: 20110727
  Receipt Date: 20110719
  Transmission Date: 20111222
  Serious: Yes (Other)
  Sender: FDA-Public Use
  Company Number: PHHY2011JP10506

PATIENT
  Sex: Male

DRUGS (10)
  1. ZOMETA [Suspect]
     Dosage: 4 MG, UNK
     Route: 041
     Dates: start: 20101115
  2. ZOMETA [Suspect]
     Dosage: 4 MG, UNK
     Route: 041
     Dates: start: 20100913
  3. ZOMETA [Suspect]
     Indication: METASTASES TO BONE
     Dosage: 4 MG, UNK
     Route: 041
     Dates: start: 20100702, end: 20110117
  4. ZOMETA [Suspect]
     Dosage: 4 MG, UNK
     Route: 041
     Dates: start: 20101213
  5. NAFTOPIDIL [Concomitant]
  6. LEUPROLIDE ACETATE [Concomitant]
  7. ZOMETA [Suspect]
     Dosage: 4 MG, UNK
     Route: 041
     Dates: start: 20100721
  8. ZOMETA [Suspect]
     Dosage: 4 MG, UNK
     Route: 041
     Dates: start: 20110117
  9. ZOMETA [Suspect]
     Dosage: 4 MG, UNK
     Route: 041
     Dates: start: 20100818
  10. ZOMETA [Suspect]
     Dosage: 4 MG, UNK
     Route: 041
     Dates: start: 20101018

REACTIONS (2)
  - OSTEONECROSIS OF JAW [None]
  - BONE DISORDER [None]
